FAERS Safety Report 6590008-2 (Version None)
Quarter: 2010Q1

REPORT INFORMATION
  Report Type: 
  Country: None (occurrence: None)
  Receive Date: 20100219
  Receipt Date: 20100208
  Transmission Date: 20100710
  Serious: Yes (Other)
  Sender: FDA-Public Use
  Company Number: PHHY2010CA07427

PATIENT
  Sex: Female

DRUGS (3)
  1. ACLASTA [Suspect]
     Indication: OSTEOPOROSIS
     Dosage: 5 MG
     Dates: start: 20100203
  2. CALCIUM [Concomitant]
  3. VITAMIN D [Concomitant]

REACTIONS (10)
  - CHEST PAIN [None]
  - DYSPNOEA [None]
  - ERYTHEMA [None]
  - EYE PRURITUS [None]
  - HYPOAESTHESIA ORAL [None]
  - NAUSEA [None]
  - PARAESTHESIA ORAL [None]
  - PRURITUS [None]
  - VOMITING [None]
  - VULVOVAGINAL PRURITUS [None]
